FAERS Safety Report 6556432-9 (Version None)
Quarter: 2010Q1

REPORT INFORMATION
  Report Type: 
  Country: None (occurrence: None)
  Receive Date: 20100128
  Receipt Date: 20100121
  Transmission Date: 20100710
  Serious: Yes (Death)
  Sender: FDA-Public Use
  Company Number: B0627995A

PATIENT
  Age: 3 Month
  Sex: Male
  Weight: 3.2 kg

DRUGS (3)
  1. ZIDOVUDINE [Suspect]
  2. LAMIVUDINE [Suspect]
  3. KALETRA [Suspect]

REACTIONS (1)
  - DEATH [None]
